FAERS Safety Report 6601115-X (Version None)
Quarter: 2010Q1

REPORT INFORMATION
  Report Type: 
  Country: None (occurrence: None)
  Receive Date: 20100224
  Receipt Date: 20100224
  Transmission Date: 20100710
  Serious: No
  Sender: FDA-Public Use
  Company Number: None

PATIENT
  Age: 6 Year
  Sex: Male
  Weight: 21.3191 kg

DRUGS (1)
  1. SINGULAR 4-5MG [Suspect]
     Indication: ASTHMA
     Dosage: 4MG DAILY ORAL (4YR) 5MG  ORAL (3 MONTHS)
     Route: 048
     Dates: start: 20050901, end: 20091201

REACTIONS (3)
  - MOOD SWINGS [None]
  - PERSONALITY DISORDER [None]
  - THINKING ABNORMAL [None]
